FAERS Safety Report 24347377 (Version 1)
Quarter: 2024Q3

REPORT INFORMATION
  Report Type: Spontaneous
  Country: US (occurrence: US)
  Receive Date: 20240922
  Receipt Date: 20240922
  Transmission Date: 20241017
  Serious: No
  Sender: CIPLA
  Company Number: US-CIPLA LTD.-2023US05064

PATIENT

DRUGS (7)
  1. DICLOFENAC [Suspect]
     Active Substance: DICLOFENAC
     Indication: Joint injury
     Dosage: 2 MILLIGRAM, QID
     Route: 061
     Dates: start: 20230815
  2. FISH OIL [Concomitant]
     Active Substance: FISH OIL
     Indication: Supplementation therapy
     Dosage: 2000 MILLIGRAM/2 CAPSULES A DAY
     Route: 065
  3. TAMARIX [Concomitant]
     Indication: Supplementation therapy
     Dosage: 2000 MG / 2 TABLETS A DAY
     Route: 065
  4. GINKGO [Concomitant]
     Active Substance: GINKGO
     Indication: Supplementation therapy
     Dosage: 120 MILLIGRAM (1 TABLET), QD
     Route: 065
  5. VITAMIN B3 [Concomitant]
     Active Substance: NIACIN
     Indication: Supplementation therapy
     Dosage: UNK
     Route: 065
  6. BIOPRINA [Concomitant]
     Indication: Supplementation therapy
     Dosage: UNK, QD
     Route: 065
  7. IBUPROFEN [Concomitant]
     Active Substance: IBUPROFEN
     Indication: Joint injury
     Dosage: 1600 MILLIGRAM (TWO TABLETS), BID
     Route: 065

REACTIONS (2)
  - Off label use [Unknown]
  - Labelled drug-drug interaction issue [Unknown]

NARRATIVE: CASE EVENT DATE: 20230815
